FAERS Safety Report 22350740 (Version 1)
Quarter: 2023Q2

REPORT INFORMATION
  Report Type: Spontaneous
  Country: US (occurrence: US)
  Receive Date: 20230522
  Receipt Date: 20230522
  Transmission Date: 20230722
  Serious: Yes (Death)
  Sender: FDA-Public Use
  Company Number: US-PFIZER INC-202300193584

PATIENT
  Age: 75 Year
  Sex: Male

DRUGS (1)
  1. DAURISMO [Suspect]
     Active Substance: GLASDEGIB
     Indication: Acute myeloid leukaemia
     Dosage: 100 MG, 1X/DAY
     Route: 048
     Dates: start: 20230406

REACTIONS (1)
  - Neoplasm progression [Fatal]
